FAERS Safety Report 9809786 (Version 2)
Quarter: 2014Q1

REPORT INFORMATION
  Report Type: Spontaneous
  Country: FR (occurrence: FR)
  Receive Date: 20140110
  Receipt Date: 20140110
  Transmission Date: 20141002
  Serious: Yes (Death)
  Sender: FDA-Public Use
  Company Number: FR-ARROW GEN-2012-03311

PATIENT
  Age: 90 Year
  Sex: Female

DRUGS (6)
  1. BUDESONIDE [Suspect]
     Indication: PRODUCT USED FOR UNKNOWN INDICATION
     Dosage: 1 MG, TID
     Route: 055
     Dates: start: 20111203, end: 20111210
  2. ACETAMINOPHEN [Suspect]
     Indication: PRODUCT USED FOR UNKNOWN INDICATION
     Dosage: 3 G, DAILY
     Route: 048
     Dates: start: 20111209, end: 20111210
  3. ARIXTRA [Suspect]
     Indication: PRODUCT USED FOR UNKNOWN INDICATION
     Dosage: 2.5 MG, DAILY
     Route: 058
     Dates: start: 20111202, end: 20111210
  4. ROVAMYCINE /00074401/ [Suspect]
     Indication: PRODUCT USED FOR UNKNOWN INDICATION
     Dosage: 3 DF, DAILY  (4.5 MILLION IU)
     Route: 048
     Dates: start: 20111206, end: 20111210
  5. METHYLPREDNISOLONE [Suspect]
     Indication: PRODUCT USED FOR UNKNOWN INDICATION
     Dosage: 40 MG, DAILY
     Route: 042
     Dates: start: 20111206, end: 20111210
  6. AMOXICILINA + ACIDO CLAVULA. SANDOZ/00852501/ [Suspect]
     Indication: PRODUCT USED FOR UNKNOWN INDICATION
     Dosage: 3 G, DAILY
     Route: 048
     Dates: start: 20111205, end: 20111210

REACTIONS (2)
  - Haematoma [Fatal]
  - Hypovolaemic shock [Fatal]
